FAERS Safety Report 14362745 (Version 1)
Quarter: 2018Q1

REPORT INFORMATION
  Report Type: Spontaneous
  Country: US (occurrence: US)
  Receive Date: 20180108
  Receipt Date: 20180108
  Transmission Date: 20180509
  Serious: No
  Sender: FDA-Public Use
  Company Number: US-JNJFOC-20171118731

PATIENT
  Sex: Male
  Weight: 148.78 kg

DRUGS (6)
  1. LANTUS [Concomitant]
     Active Substance: INSULIN GLARGINE
     Dosage: 100 UNITS /ML, 0.02ML
     Route: 058
  2. STELARA [Suspect]
     Active Substance: USTEKINUMAB
     Indication: PSORIASIS
     Route: 058
  3. TRIAMCINOLONE ACETONIDE. [Concomitant]
     Active Substance: TRIAMCINOLONE ACETONIDE
     Dosage: ONE APPLICATION TO B AFFECTED AREA EXTREMELY
     Route: 061
  4. LISINOPRIL. [Concomitant]
     Active Substance: LISINOPRIL
     Route: 048
  5. DESONIDE. [Concomitant]
     Active Substance: DESONIDE
     Dosage: EXTERNALLY ON AFFECTED AREA
     Route: 061
  6. COSENTYX [Concomitant]
     Active Substance: SECUKINUMAB
     Route: 058

REACTIONS (1)
  - Exfoliative rash [Unknown]
